FAERS Safety Report 11172983 (Version 2)
Quarter: 2015Q2

REPORT INFORMATION
  Report Type: Spontaneous
  Country: US (occurrence: US)
  Receive Date: 20150608
  Receipt Date: 20150608
  Transmission Date: 20150821
  Serious: No
  Sender: FDA-Public Use
  Company Number: US-TOLMAR INC.-1039888

PATIENT
  Age: 75 Year
  Sex: Female
  Weight: 69.09 kg

DRUGS (1)
  1. KETOCONAZOLE. [Suspect]
     Active Substance: KETOCONAZOLE
     Indication: DRY SKIN
     Route: 061
     Dates: start: 20150218, end: 20150218

REACTIONS (4)
  - Rash erythematous [Unknown]
  - Condition aggravated [Unknown]
  - Skin irritation [Unknown]
  - Rash papular [Unknown]

NARRATIVE: CASE EVENT DATE: 201502
